FAERS Safety Report 8398053 (Version 5)
Quarter: 2012Q4

REPORT INFORMATION
  Report Type: 
  Country: US (occurrence: US)
  Receive Date: 20120209
  Receipt Date: 20121114
  Transmission Date: 20130627
  Serious: Yes (Hospitalization, Other)
  Sender: FDA-Public Use
  Company Number: US-MERCK-1202USA01291

PATIENT

DRUGS (7)
  1. FOSAMAX [Suspect]
     Indication: OSTEOPOROSIS PROPHYLAXIS
     Dosage: 10 mg, qd
     Route: 048
     Dates: start: 1995
  2. FOSAMAX [Suspect]
     Dosage: 70 mg, qw
     Route: 048
     Dates: end: 2008
  3. FOSAMAX [Suspect]
     Dosage: 70 mg, UNK
     Route: 048
  4. ALENDRONATE SODIUM [Suspect]
     Indication: OSTEOPOROSIS PROPHYLAXIS
     Dosage: 70 mg, qw
     Route: 048
     Dates: start: 200804, end: 200909
  5. OSTEO-BI-FLEX [Concomitant]
     Dosage: UNK, bid
     Dates: start: 1980
  6. VITAMIN E [Concomitant]
     Dosage: UNK, qd
     Dates: start: 1980
  7. CALCIUM (UNSPECIFIED) (+) VITAMIN D (UNSPECIFIED) [Concomitant]
     Dosage: UNK, qd
     Dates: start: 1980

REACTIONS (19)
  - Femur fracture [Unknown]
  - Intramedullary rod insertion [Unknown]
  - Femur fracture [Unknown]
  - Intramedullary rod insertion [Unknown]
  - Gallbladder operation [Unknown]
  - Medical device pain [Unknown]
  - Surgery [Unknown]
  - Medical device removal [Unknown]
  - Musculoskeletal pain [Unknown]
  - Oral surgery [Unknown]
  - Periodontal operation [Unknown]
  - Gastrooesophageal reflux disease [Unknown]
  - Reflux laryngitis [Unknown]
  - Cough [Not Recovered/Not Resolved]
  - Rhinitis allergic [Unknown]
  - Hysterectomy [Unknown]
  - Cataract [Unknown]
  - Visual impairment [Unknown]
  - Migraine [Unknown]
